FAERS Safety Report 6310170-6 (Version None)
Quarter: 2009Q3

REPORT INFORMATION
  Report Type: 
  Country: None (occurrence: None)
  Receive Date: 20090814
  Receipt Date: 20090719
  Transmission Date: 20100115
  Serious: No
  Sender: FDA-Public Use
  Company Number: JO-GENENTECH-287453

PATIENT

DRUGS (1)
  1. HERCEPTIN [Suspect]
     Indication: BREAST CANCER
     Dosage: 6 MG/KG, Q3W
     Route: 042
     Dates: start: 20090412, end: 20090716

REACTIONS (2)
  - ABORTION INDUCED [None]
  - DRUG EXPOSURE DURING PREGNANCY [None]
